FAERS Safety Report 25601416 (Version 1)
Quarter: 2025Q3

REPORT INFORMATION
  Report Type: Spontaneous
  Country: CA (occurrence: CA)
  Receive Date: 20250724
  Receipt Date: 20250724
  Transmission Date: 20251021
  Serious: Yes (Death, Life-Threatening, Hospitalization, Disabling, Congenital Anomaly, Other)
  Sender: Haleon PLC
  Company Number: CA-HALEON-2253979

PATIENT
  Age: 40 Year
  Sex: Female

DRUGS (205)
  1. VOLTAREN [Suspect]
     Active Substance: DICLOFENAC SODIUM
     Indication: Product used for unknown indication
  2. TUMS ULTRA [Suspect]
     Active Substance: CALCIUM CARBONATE
     Indication: Product used for unknown indication
  3. TUMS ULTRA [Suspect]
     Active Substance: CALCIUM CARBONATE
  4. DICLOFENAC [Suspect]
     Active Substance: DICLOFENAC
     Indication: Product used for unknown indication
  5. DICLOFENAC [Suspect]
     Active Substance: DICLOFENAC
  6. DICLOFENAC [Suspect]
     Active Substance: DICLOFENAC
  7. COSENTYX [Suspect]
     Active Substance: SECUKINUMAB
     Indication: Rheumatoid arthritis
  8. COSENTYX [Suspect]
     Active Substance: SECUKINUMAB
     Indication: Psoriatic arthropathy
  9. COSENTYX [Suspect]
     Active Substance: SECUKINUMAB
     Indication: Psoriatic arthropathy
  10. COSENTYX [Suspect]
     Active Substance: SECUKINUMAB
     Indication: Rheumatoid arthritis
  11. ERELZI [Suspect]
     Active Substance: ETANERCEPT-SZZS
     Indication: Rheumatoid arthritis
  12. FLUMETHASONE [Suspect]
     Active Substance: FLUMETHASONE
     Indication: Product used for unknown indication
  13. FLUMETHASONE PIVALATE [Suspect]
     Active Substance: FLUMETHASONE PIVALATE
     Indication: Product used for unknown indication
  14. FOLIC ACID [Suspect]
     Active Substance: FOLIC ACID
     Indication: Rheumatoid arthritis
  15. FOLIC ACID [Suspect]
     Active Substance: FOLIC ACID
  16. FOLIC ACID [Suspect]
     Active Substance: FOLIC ACID
  17. FOLIC ACID [Suspect]
     Active Substance: FOLIC ACID
  18. FOLIC ACID [Suspect]
     Active Substance: FOLIC ACID
  19. FOLIC ACID [Suspect]
     Active Substance: FOLIC ACID
  20. FOLIC ACID [Suspect]
     Active Substance: FOLIC ACID
  21. FOLIC ACID [Suspect]
     Active Substance: FOLIC ACID
  22. FOLIC ACID [Suspect]
     Active Substance: FOLIC ACID
  23. FOLIC ACID [Suspect]
     Active Substance: FOLIC ACID
  24. FOLIC ACID [Suspect]
     Active Substance: FOLIC ACID
     Route: 048
  25. FOLIC ACID [Suspect]
     Active Substance: FOLIC ACID
  26. FOSAMAX [Suspect]
     Active Substance: ALENDRONATE SODIUM
     Indication: Rheumatoid arthritis
  27. FOSAMAX [Suspect]
     Active Substance: ALENDRONATE SODIUM
     Route: 048
  28. FOSAMAX [Suspect]
     Active Substance: ALENDRONATE SODIUM
     Route: 016
  29. FOSAMAX [Suspect]
     Active Substance: ALENDRONATE SODIUM
  30. GOLD [Suspect]
     Active Substance: GOLD
     Indication: Product used for unknown indication
  31. GOLD SODIUM THIOMALATE [Suspect]
     Active Substance: GOLD SODIUM THIOMALATE
     Indication: Product used for unknown indication
  32. GOLIMUMAB [Suspect]
     Active Substance: GOLIMUMAB
     Indication: Rheumatoid arthritis
  33. HUMIRA [Suspect]
     Active Substance: ADALIMUMAB
     Indication: Rheumatoid arthritis
  34. HUMIRA [Suspect]
     Active Substance: ADALIMUMAB
     Indication: Rheumatoid arthritis
  35. HUMIRA [Suspect]
     Active Substance: ADALIMUMAB
  36. HUMIRA [Suspect]
     Active Substance: ADALIMUMAB
  37. HUMIRA [Suspect]
     Active Substance: ADALIMUMAB
  38. HYDROXYCHLOROQUINE [Suspect]
     Active Substance: HYDROXYCHLOROQUINE
     Indication: Rheumatoid arthritis
  39. HYDROXYCHLOROQUINE [Suspect]
     Active Substance: HYDROXYCHLOROQUINE
  40. HYDROXYCHLOROQUINE [Suspect]
     Active Substance: HYDROXYCHLOROQUINE
  41. HYDROXYCHLOROQUINE [Suspect]
     Active Substance: HYDROXYCHLOROQUINE
  42. HYDROXYCHLOROQUINE [Suspect]
     Active Substance: HYDROXYCHLOROQUINE
  43. HYDROXYCHLOROQUINE [Suspect]
     Active Substance: HYDROXYCHLOROQUINE
  44. HYDROXYCHLOROQUINE [Suspect]
     Active Substance: HYDROXYCHLOROQUINE
  45. HYDROXYCHLOROQUINE [Suspect]
     Active Substance: HYDROXYCHLOROQUINE
  46. HYDROXYCHLOROQUINE [Suspect]
     Active Substance: HYDROXYCHLOROQUINE
  47. HYDROXYCHLOROQUINE [Suspect]
     Active Substance: HYDROXYCHLOROQUINE
  48. HYDROXYCHLOROQUINE [Suspect]
     Active Substance: HYDROXYCHLOROQUINE
  49. HYDROXYCHLOROQUINE [Suspect]
     Active Substance: HYDROXYCHLOROQUINE
     Dosage: ROA: SUBCUTANEOUS
  50. HYDROXYCHLOROQUINE [Suspect]
     Active Substance: HYDROXYCHLOROQUINE
     Dosage: ROA: SUBCUTANEOUS
  51. HYDROXYCHLOROQUINE [Suspect]
     Active Substance: HYDROXYCHLOROQUINE
     Route: 048
  52. HYDROXYCHLOROQUINE [Suspect]
     Active Substance: HYDROXYCHLOROQUINE
     Route: 048
  53. HYDROXYCHLOROQUINE [Suspect]
     Active Substance: HYDROXYCHLOROQUINE
     Route: 048
  54. HYDROXYCHLOROQUINE [Suspect]
     Active Substance: HYDROXYCHLOROQUINE
     Route: 048
  55. HYDROXYCHLOROQUINE [Suspect]
     Active Substance: HYDROXYCHLOROQUINE
     Route: 048
  56. HYDROXYCHLOROQUINE [Suspect]
     Active Substance: HYDROXYCHLOROQUINE
     Route: 048
  57. HYDROXYCHLOROQUINE [Suspect]
     Active Substance: HYDROXYCHLOROQUINE
     Route: 048
  58. HYDROXYCHLOROQUINE [Suspect]
     Active Substance: HYDROXYCHLOROQUINE
     Route: 048
  59. HYDROXYCHLOROQUINE [Suspect]
     Active Substance: HYDROXYCHLOROQUINE
     Route: 016
  60. HYDROXYCHLOROQUINE SULFATE [Suspect]
     Active Substance: HYDROXYCHLOROQUINE SULFATE
     Indication: Rheumatoid arthritis
  61. HYDROXYCHLOROQUINE SULFATE [Suspect]
     Active Substance: HYDROXYCHLOROQUINE SULFATE
  62. HYDROXYCHLOROQUINE SULFATE [Suspect]
     Active Substance: HYDROXYCHLOROQUINE SULFATE
  63. HYDROXYCHLOROQUINE SULFATE [Suspect]
     Active Substance: HYDROXYCHLOROQUINE SULFATE
  64. HYDROXYCHLOROQUINE SULFATE [Suspect]
     Active Substance: HYDROXYCHLOROQUINE SULFATE
     Route: 048
  65. HYDROXYCHLOROQUINE SULFATE [Suspect]
     Active Substance: HYDROXYCHLOROQUINE SULFATE
     Route: 048
  66. HYDROXYCHLOROQUINE SULFATE [Suspect]
     Active Substance: HYDROXYCHLOROQUINE SULFATE
  67. PANTOPRAZOLE SODIUM [Suspect]
     Active Substance: PANTOPRAZOLE SODIUM
     Indication: Product used for unknown indication
  68. PHENYLEPHRINE HYDROCHLORIDE [Suspect]
     Active Substance: PHENYLEPHRINE HYDROCHLORIDE
     Indication: Rheumatoid arthritis
  69. PHENYLEPHRINE HYDROCHLORIDE [Suspect]
     Active Substance: PHENYLEPHRINE HYDROCHLORIDE
  70. PSEUDOEPHEDRINE HYDROCHLORIDE [Suspect]
     Active Substance: PSEUDOEPHEDRINE HYDROCHLORIDE
     Indication: Rheumatoid arthritis
  71. RAMIPRIL [Suspect]
     Active Substance: RAMIPRIL
     Indication: Rheumatoid arthritis
  72. RITUXIMAB [Suspect]
     Active Substance: RITUXIMAB
     Indication: Rheumatoid arthritis
  73. RITUXIMAB [Suspect]
     Active Substance: RITUXIMAB
  74. RITUXIMAB [Suspect]
     Active Substance: RITUXIMAB
  75. RITUXIMAB [Suspect]
     Active Substance: RITUXIMAB
  76. RITUXIMAB [Suspect]
     Active Substance: RITUXIMAB
  77. RITUXIMAB [Suspect]
     Active Substance: RITUXIMAB
  78. RITUXIMAB [Suspect]
     Active Substance: RITUXIMAB
  79. RITUXIMAB [Suspect]
     Active Substance: RITUXIMAB
  80. RITUXIMAB [Suspect]
     Active Substance: RITUXIMAB
  81. RITUXIMAB [Suspect]
     Active Substance: RITUXIMAB
  82. RITUXIMAB [Suspect]
     Active Substance: RITUXIMAB
  83. RITUXIMAB [Suspect]
     Active Substance: RITUXIMAB
  84. RITUXIMAB [Suspect]
     Active Substance: RITUXIMAB
  85. RITUXIMAB [Suspect]
     Active Substance: RITUXIMAB
  86. RITUXIMAB [Suspect]
     Active Substance: RITUXIMAB
  87. RITUXIMAB [Suspect]
     Active Substance: RITUXIMAB
  88. RITUXIMAB [Suspect]
     Active Substance: RITUXIMAB
  89. RITUXIMAB [Suspect]
     Active Substance: RITUXIMAB
     Route: 016
  90. RITUXIMAB [Suspect]
     Active Substance: RITUXIMAB
     Route: 016
  91. RITUXIMAB [Suspect]
     Active Substance: RITUXIMAB
     Route: 016
  92. RITUXIMAB [Suspect]
     Active Substance: RITUXIMAB
     Indication: Rheumatoid arthritis
  93. APREMILAST [Suspect]
     Active Substance: APREMILAST
     Indication: Rheumatoid arthritis
  94. ATOMOXETINE HYDROCHLORIDE [Suspect]
     Active Substance: ATOMOXETINE HYDROCHLORIDE
     Indication: Migraine
  95. CELECOXIB [Suspect]
     Active Substance: CELECOXIB
     Indication: Product used for unknown indication
  96. CELECOXIB [Suspect]
     Active Substance: CELECOXIB
     Indication: Product used for unknown indication
  97. HYDROCORTISONE [Suspect]
     Active Substance: HYDROCORTISONE
     Indication: Product used for unknown indication
  98. LEFLUNOMIDE [Suspect]
     Active Substance: LEFLUNOMIDE
     Indication: Rheumatoid arthritis
  99. LEFLUNOMIDE [Suspect]
     Active Substance: LEFLUNOMIDE
  100. LEFLUNOMIDE [Suspect]
     Active Substance: LEFLUNOMIDE
  101. LEFLUNOMIDE [Suspect]
     Active Substance: LEFLUNOMIDE
  102. LEFLUNOMIDE [Suspect]
     Active Substance: LEFLUNOMIDE
     Route: 048
  103. LEFLUNOMIDE [Suspect]
     Active Substance: LEFLUNOMIDE
     Indication: Rheumatoid arthritis
  104. TOPIRAMATE [Suspect]
     Active Substance: TOPIRAMATE
     Indication: Migraine
  105. TOPIRAMATE [Suspect]
     Active Substance: TOPIRAMATE
  106. TOPIRAMATE [Suspect]
     Active Substance: TOPIRAMATE
  107. TOPIRAMATE [Suspect]
     Active Substance: TOPIRAMATE
     Indication: Migraine
  108. SIMPONI [Suspect]
     Active Substance: GOLIMUMAB
     Indication: Rheumatoid arthritis
  109. SODIUM AUROTIOSULFATE [Suspect]
     Active Substance: SODIUM AUROTIOSULFATE
     Indication: Product used for unknown indication
  110. ACTEMRA [Suspect]
     Active Substance: TOCILIZUMAB
     Indication: Rheumatoid arthritis
  111. ACTEMRA [Suspect]
     Active Substance: TOCILIZUMAB
  112. ACTEMRA [Suspect]
     Active Substance: TOCILIZUMAB
  113. ACTEMRA [Suspect]
     Active Substance: TOCILIZUMAB
  114. ACTEMRA [Suspect]
     Active Substance: TOCILIZUMAB
  115. ACTEMRA [Suspect]
     Active Substance: TOCILIZUMAB
  116. ACTEMRA [Suspect]
     Active Substance: TOCILIZUMAB
  117. ACTEMRA [Suspect]
     Active Substance: TOCILIZUMAB
  118. ACTEMRA [Suspect]
     Active Substance: TOCILIZUMAB
     Route: 016
  119. ACTEMRA [Suspect]
     Active Substance: TOCILIZUMAB
  120. ACTEMRA [Suspect]
     Active Substance: TOCILIZUMAB
  121. ACTEMRA [Suspect]
     Active Substance: TOCILIZUMAB
  122. ACTEMRA [Suspect]
     Active Substance: TOCILIZUMAB
  123. ACTEMRA [Suspect]
     Active Substance: TOCILIZUMAB
  124. ACTEMRA [Suspect]
     Active Substance: TOCILIZUMAB
  125. ACTEMRA [Suspect]
     Active Substance: TOCILIZUMAB
  126. ACTEMRA [Suspect]
     Active Substance: TOCILIZUMAB
  127. ACTEMRA [Suspect]
     Active Substance: TOCILIZUMAB
  128. AIMOVIG [Suspect]
     Active Substance: ERENUMAB-AOOE
     Indication: Migraine
  129. ALENDRONATE SODIUM [Suspect]
     Active Substance: ALENDRONATE SODIUM
     Indication: Rheumatoid arthritis
  130. ALENDRONATE SODIUM [Suspect]
     Active Substance: ALENDRONATE SODIUM
     Route: 016
  131. ALENDRONATE SODIUM [Suspect]
     Active Substance: ALENDRONATE SODIUM
     Route: 048
  132. ALENDRONATE SODIUM [Suspect]
     Active Substance: ALENDRONATE SODIUM
     Route: 048
  133. LEFLUNOMIDE [Suspect]
     Active Substance: LEFLUNOMIDE
     Indication: Rheumatoid arthritis
  134. LEFLUNOMIDE [Suspect]
     Active Substance: LEFLUNOMIDE
  135. LEFLUNOMIDE [Suspect]
     Active Substance: LEFLUNOMIDE
     Route: 048
  136. LEFLUNOMIDE [Suspect]
     Active Substance: LEFLUNOMIDE
     Route: 048
  137. LEFLUNOMIDE [Suspect]
     Active Substance: LEFLUNOMIDE
     Route: 048
  138. LEFLUNOMIDE [Suspect]
     Active Substance: LEFLUNOMIDE
     Route: 048
  139. LEFLUNOMIDE [Suspect]
     Active Substance: LEFLUNOMIDE
     Route: 048
  140. LEFLUNOMIDE [Suspect]
     Active Substance: LEFLUNOMIDE
     Route: 048
  141. LEFLUNOMIDE [Suspect]
     Active Substance: LEFLUNOMIDE
     Route: 048
  142. ARAVA [Suspect]
     Active Substance: LEFLUNOMIDE
     Indication: Rheumatoid arthritis
  143. ARAVA [Suspect]
     Active Substance: LEFLUNOMIDE
     Route: 048
  144. ARAVA [Suspect]
     Active Substance: LEFLUNOMIDE
     Route: 048
  145. AZATHIOPRINE [Suspect]
     Active Substance: AZATHIOPRINE
     Indication: Product used for unknown indication
  146. BOTULINUM TOXIN TYPE A [Suspect]
     Active Substance: BOTULINUM TOXIN TYPE A
     Indication: Product used for unknown indication
  147. BUTRANS [Suspect]
     Active Substance: BUPRENORPHINE
     Indication: Product used for unknown indication
  148. CALCIUM ASCORBATE [Suspect]
     Active Substance: CALCIUM ASCORBATE
     Indication: Product used for unknown indication
  149. CALCIUM ASCORBATE [Suspect]
     Active Substance: CALCIUM ASCORBATE
  150. CALCIUM GLUBIONATE [Suspect]
     Active Substance: CALCIUM GLUBIONATE
     Indication: Product used for unknown indication
     Route: 016
  151. CANDESARTAN [Suspect]
     Active Substance: CANDESARTAN
     Indication: Migraine
     Route: 048
  152. CELECOXIB [Suspect]
     Active Substance: CELECOXIB
     Indication: Product used for unknown indication
  153. CERTOLIZUMAB PEGOL [Suspect]
     Active Substance: CERTOLIZUMAB PEGOL
     Indication: Rheumatoid arthritis
  154. CERTOLIZUMAB PEGOL [Suspect]
     Active Substance: CERTOLIZUMAB PEGOL
  155. CERTOLIZUMAB PEGOL [Suspect]
     Active Substance: CERTOLIZUMAB PEGOL
  156. CETIRIZINE HYDROCHLORIDE [Suspect]
     Active Substance: CETIRIZINE HYDROCHLORIDE
     Indication: Rheumatoid arthritis
  157. CETIRIZINE HYDROCHLORIDE [Suspect]
     Active Substance: CETIRIZINE HYDROCHLORIDE
  158. CETIRIZINE HYDROCHLORIDE [Suspect]
     Active Substance: CETIRIZINE HYDROCHLORIDE
  159. CETIRIZINE HYDROCHLORIDE [Suspect]
     Active Substance: CETIRIZINE HYDROCHLORIDE
  160. CETIRIZINE HYDROCHLORIDE [Suspect]
     Active Substance: CETIRIZINE HYDROCHLORIDE
  161. CETIRIZINE HYDROCHLORIDE [Suspect]
     Active Substance: CETIRIZINE HYDROCHLORIDE
  162. CETIRIZINE HYDROCHLORIDE [Suspect]
     Active Substance: CETIRIZINE HYDROCHLORIDE
     Route: 048
  163. CETIRIZINE HYDROCHLORIDE [Suspect]
     Active Substance: CETIRIZINE HYDROCHLORIDE
     Route: 048
  164. CETIRIZINE HYDROCHLORIDE [Suspect]
     Active Substance: CETIRIZINE HYDROCHLORIDE
     Route: 048
  165. CETIRIZINE HYDROCHLORIDE [Suspect]
     Active Substance: CETIRIZINE HYDROCHLORIDE
     Route: 048
  166. CETIRIZINE HYDROCHLORIDE [Suspect]
     Active Substance: CETIRIZINE HYDROCHLORIDE
     Route: 048
  167. CETIRIZINE HYDROCHLORIDE [Suspect]
     Active Substance: CETIRIZINE HYDROCHLORIDE
     Route: 048
  168. CETIRIZINE HYDROCHLORIDE [Suspect]
     Active Substance: CETIRIZINE HYDROCHLORIDE
     Route: 048
  169. CHLORHEXIDINE GLUCONATE [Suspect]
     Active Substance: CHLORHEXIDINE GLUCONATE
     Indication: Product used for unknown indication
  170. CHLORHEXIDINE GLUCONATE [Suspect]
     Active Substance: CHLORHEXIDINE GLUCONATE
  171. CIMZIA [Suspect]
     Active Substance: CERTOLIZUMAB PEGOL
     Indication: Rheumatoid arthritis
  172. CIMZIA [Suspect]
     Active Substance: CERTOLIZUMAB PEGOL
  173. CIMZIA [Suspect]
     Active Substance: CERTOLIZUMAB PEGOL
  174. CIMZIA [Suspect]
     Active Substance: CERTOLIZUMAB PEGOL
  175. DESOXIMETASONE [Suspect]
     Active Substance: DESOXIMETASONE
     Indication: Rheumatoid arthritis
     Route: 048
  176. DOMPERIDONE MALEATE [Suspect]
     Active Substance: DOMPERIDONE MALEATE
     Indication: Product used for unknown indication
  177. ENBREL [Suspect]
     Active Substance: ETANERCEPT
     Indication: Rheumatoid arthritis
  178. ENBREL [Suspect]
     Active Substance: ETANERCEPT
  179. ENBREL [Suspect]
     Active Substance: ETANERCEPT
  180. ENBREL [Suspect]
     Active Substance: ETANERCEPT
  181. ENBREL [Suspect]
     Active Substance: ETANERCEPT
  182. ENBREL [Suspect]
     Active Substance: ETANERCEPT
  183. ENBREL [Suspect]
     Active Substance: ETANERCEPT
  184. ENBREL [Suspect]
     Active Substance: ETANERCEPT
  185. HYRIMOZ [Suspect]
     Active Substance: ADALIMUMAB-ADAZ
     Indication: Rheumatoid arthritis
  186. HYRIMOZ [Suspect]
     Active Substance: ADALIMUMAB-ADAZ
     Indication: Rheumatoid arthritis
  187. INFLIXIMAB [Suspect]
     Active Substance: INFLIXIMAB
     Indication: Rheumatoid arthritis
     Route: 042
  188. INFLIXIMAB [Suspect]
     Active Substance: INFLIXIMAB
     Route: 042
  189. INFLIXIMAB [Suspect]
     Active Substance: INFLIXIMAB
     Route: 042
  190. INFLIXIMAB [Suspect]
     Active Substance: INFLIXIMAB
     Route: 042
  191. INFLIXIMAB [Suspect]
     Active Substance: INFLIXIMAB
  192. LAMICTAL [Suspect]
     Active Substance: LAMOTRIGINE
     Indication: Product used for unknown indication
     Route: 048
  193. LAMICTAL [Suspect]
     Active Substance: LAMOTRIGINE
  194. LAMICTAL [Suspect]
     Active Substance: LAMOTRIGINE
     Route: 048
  195. LAMICTAL [Suspect]
     Active Substance: LAMOTRIGINE
     Route: 048
  196. LAMICTAL [Suspect]
     Active Substance: LAMOTRIGINE
     Route: 048
  197. TRAMADOL [Suspect]
     Active Substance: TRAMADOL
     Indication: Product used for unknown indication
  198. TRAZODONE [Suspect]
     Active Substance: TRAZODONE HYDROCHLORIDE
     Indication: Product used for unknown indication
  199. TRETINOIN [Suspect]
     Active Substance: TRETINOIN
     Indication: Product used for unknown indication
  200. TRIAMCINOLONE [Suspect]
     Active Substance: TRIAMCINOLONE
     Indication: Product used for unknown indication
  201. VITAMIN C [Suspect]
     Active Substance: ASCORBIC ACID
     Indication: Product used for unknown indication
  202. VITAMIN D3 [Suspect]
     Active Substance: CHOLECALCIFEROL
     Indication: Product used for unknown indication
  203. XELJANZ [Suspect]
     Active Substance: TOFACITINIB CITRATE
     Indication: Rheumatoid arthritis
  204. ACETAMINOPHEN [Suspect]
     Active Substance: ACETAMINOPHEN
     Indication: Rheumatoid arthritis
  205. OXYCODONE [Suspect]
     Active Substance: OXYCODONE
     Indication: Product used for unknown indication

REACTIONS (12)
  - Drug-induced liver injury [Fatal]
  - Arthropathy [Fatal]
  - Glossodynia [Fatal]
  - Hypertension [Fatal]
  - Hepatic enzyme increased [Fatal]
  - General physical health deterioration [Fatal]
  - Fatigue [Fatal]
  - Off label use [Fatal]
  - Blood cholesterol increased [Fatal]
  - Exposure during pregnancy [Fatal]
  - Hand deformity [Fatal]
  - Hypersensitivity [Fatal]
